FAERS Safety Report 7277600-7 (Version None)
Quarter: 2011Q1

REPORT INFORMATION
  Report Type: 
  Country: None (occurrence: None)
  Receive Date: 20110207
  Receipt Date: 20110126
  Transmission Date: 20110831
  Serious: Yes (Hospitalization)
  Sender: FDA-Public Use
  Company Number: US-ELI_LILLY_AND_COMPANY-US201007002062

PATIENT
  Sex: Female

DRUGS (18)
  1. HYDROCODONE BITARTRATE [Concomitant]
  2. SPIRIVA [Concomitant]
  3. OMEPRAZOLE [Concomitant]
  4. DILTIAZEM [Concomitant]
  5. BACTRIM [Concomitant]
  6. FORTEO [Suspect]
     Indication: OSTEOPOROSIS
     Dosage: 20 UG, DAILY (1/D)
  7. FORTEO [Suspect]
     Dosage: 20 UG, DAILY (1/D)
  8. SINGULAIR [Concomitant]
  9. THEOPHYLLINE [Concomitant]
  10. MIRALAX [Concomitant]
  11. DUONEB [Concomitant]
  12. METOLAZONE [Concomitant]
  13. MEGACE [Concomitant]
  14. CALCIUM +VIT D [Concomitant]
  15. CATAPRES /00171102/ [Concomitant]
  16. FORTEO [Suspect]
     Dosage: 20 UG, DAILY (1/D)
     Route: 065
  17. PROAIR HFA [Concomitant]
  18. CORTISONE [Concomitant]

REACTIONS (5)
  - GAIT DISTURBANCE [None]
  - CHRONIC OBSTRUCTIVE PULMONARY DISEASE [None]
  - BRONCHITIS [None]
  - MALAISE [None]
  - DYSPNOEA [None]
